FAERS Safety Report 4875683-2 (Version None)
Quarter: 2006Q1

REPORT INFORMATION
  Report Type: 
  Country: None (occurrence: None)
  Receive Date: 20060109
  Receipt Date: 20051227
  Transmission Date: 20060701
  Serious: Yes (Hospitalization)
  Sender: FDA-Public Use
  Company Number: JP-JNJFOC-20040104990

PATIENT
  Age: 16 Year
  Sex: Female

DRUGS (16)
  1. RISPERIDONE [Suspect]
     Route: 048
  2. RISPERIDONE [Suspect]
     Indication: PSYCHIATRIC SYMPTOM
     Route: 048
  3. RISPERIDONE [Suspect]
     Indication: EATING DISORDER
     Route: 048
  4. HALOPERIDOL [Concomitant]
     Route: 048
  5. HALOPERIDOL [Concomitant]
     Route: 048
  6. HALOPERIDOL [Concomitant]
     Indication: PSYCHIATRIC SYMPTOM
     Route: 048
  7. CHLORPROMAZINE HCL [Concomitant]
     Route: 048
  8. CHLORPROMAZINE HCL [Concomitant]
     Route: 048
  9. CHLORPROMAZINE HCL [Concomitant]
     Route: 048
  10. CHLORPROMAZINE HCL [Concomitant]
     Indication: PSYCHIATRIC SYMPTOM
     Route: 048
  11. BIPERIDEN HYDROCHLORIDE TAB [Concomitant]
     Route: 048
  12. BIPERIDEN HYDROCHLORIDE TAB [Concomitant]
     Route: 048
  13. BIPERIDEN HYDROCHLORIDE TAB [Concomitant]
     Route: 048
  14. MOSAPRIDE CITRATE [Concomitant]
     Route: 048
  15. MOSAPRIDE CITRATE [Concomitant]
     Route: 048
  16. MOSAPRIDE CITRATE [Concomitant]
     Route: 048

REACTIONS (1)
  - MUSCLE HYPERTROPHY [None]
